FAERS Safety Report 17751062 (Version 1)
Quarter: 2020Q2

REPORT INFORMATION
  Report Type: Spontaneous
  Country: PH (occurrence: PH)
  Receive Date: 20200506
  Receipt Date: 20200506
  Transmission Date: 20200714
  Serious: Yes (Other)
  Sender: FDA-Public Use
  Company Number: PH-SA-2020SA114294

PATIENT
  Age: 38 Year
  Sex: Male

DRUGS (1)
  1. ENOXAPARIN SODIUM. [Suspect]
     Active Substance: ENOXAPARIN SODIUM
     Indication: PULMONARY EMBOLISM
     Route: 065

REACTIONS (5)
  - Small intestinal haemorrhage [Unknown]
  - Myelofibrosis [Unknown]
  - Upper gastrointestinal haemorrhage [Unknown]
  - Portal hypertensive gastropathy [Unknown]
  - Varices oesophageal [Unknown]
